FAERS Safety Report 10595735 (Version 2)
Quarter: 2014Q4

REPORT INFORMATION
  Report Type: Spontaneous
  Country: FR (occurrence: FR)
  Receive Date: 20141120
  Receipt Date: 20141120
  Transmission Date: 20150529
  Serious: Yes (Hospitalization, Other)
  Sender: FDA-Public Use
  Company Number: FR-ABBVIE-07P-056-0359524-00

PATIENT
  Age: 58 Year
  Sex: Male

DRUGS (4)
  1. CELESTENE [Concomitant]
     Active Substance: BETAMETHASONE
     Indication: PRODUCT USED FOR UNKNOWN INDICATION
     Dates: start: 20061227, end: 20061229
  2. MONONAXY 500MG [Suspect]
     Active Substance: CLARITHROMYCIN
     Indication: BRONCHITIS
     Route: 048
     Dates: start: 20061227, end: 20061229
  3. TEGRETOL [Interacting]
     Active Substance: CARBAMAZEPINE
     Indication: EPILEPSY
     Route: 048
     Dates: start: 2001
  4. EPITOMAX [Concomitant]
     Active Substance: TOPIRAMATE
     Indication: PRODUCT USED FOR UNKNOWN INDICATION
     Dates: start: 2004

REACTIONS (9)
  - Malaise [Recovered/Resolved]
  - Aphasia [Unknown]
  - Limb discomfort [Unknown]
  - Drug level increased [Unknown]
  - Drug interaction [Recovered/Resolved]
  - Gait disturbance [Recovered/Resolved]
  - Speech disorder [Recovered/Resolved]
  - Fall [Unknown]
  - Atypical benign partial epilepsy [Unknown]

NARRATIVE: CASE EVENT DATE: 20061229
